FAERS Safety Report 13010550 (Version 1)
Quarter: 2016Q4

REPORT INFORMATION
  Report Type: Spontaneous
  Country: US (occurrence: US)
  Receive Date: 20161208
  Receipt Date: 20161208
  Transmission Date: 20170207
  Serious: Yes (Death, Hospitalization)
  Sender: FDA-Public Use
  Company Number: None

PATIENT
  Age: 52 Year
  Sex: Male
  Weight: 72.58 kg

DRUGS (2)
  1. AMBIEN [Concomitant]
     Active Substance: ZOLPIDEM TARTRATE
  2. HARVONI [Suspect]
     Active Substance: LEDIPASVIR\SOFOSBUVIR
     Indication: HEPATITIS C
     Dosage: 1 PILL PER DAY FOR 12 WEEKS ?90 MG LEDIPASVIR?400 MG SOFOSBUVIR
     Route: 048
     Dates: start: 20150717, end: 20151016

REACTIONS (11)
  - Depression [None]
  - Psychotic disorder [None]
  - Anxiety [None]
  - Mental impairment [None]
  - Obsessive thoughts [None]
  - Memory impairment [None]
  - Disturbance in attention [None]
  - Suicidal ideation [None]
  - Hepatitis C [None]
  - Completed suicide [None]
  - Insomnia [None]

NARRATIVE: CASE EVENT DATE: 20150717
